FAERS Safety Report 8225779-2 (Version None)
Quarter: 2012Q1

REPORT INFORMATION
  Report Type: 
  Country: None (occurrence: None)
  Receive Date: 20120321
  Receipt Date: 20120309
  Transmission Date: 20120608
  Serious: Yes (Other)
  Sender: FDA-Public Use
  Company Number: CA-ELI_LILLY_AND_COMPANY-CA201203002783

PATIENT
  Sex: Female

DRUGS (4)
  1. HUMULIN 70/30 [Suspect]
     Indication: TYPE 2 DIABETES MELLITUS
     Dosage: 10 U, UNKNOWN
     Route: 065
     Dates: end: 20120210
  2. NOVOLOG [Concomitant]
     Indication: TYPE 2 DIABETES MELLITUS
  3. LEVEMIR [Concomitant]
     Indication: TYPE 2 DIABETES MELLITUS
     Dosage: UNK
     Dates: start: 20120210, end: 20120307
  4. NOVORAPID [Concomitant]
     Indication: TYPE 2 DIABETES MELLITUS
     Dosage: UNK
     Dates: start: 20120210

REACTIONS (11)
  - OROPHARYNGEAL SWELLING [None]
  - ABDOMINAL DISTENSION [None]
  - LIP DISORDER [None]
  - HYPERSENSITIVITY [None]
  - SWELLING FACE [None]
  - GENERALISED OEDEMA [None]
  - LOCAL SWELLING [None]
  - TONGUE DISORDER [None]
  - HEART RATE INCREASED [None]
  - DYSPNOEA [None]
  - RASH [None]
